FAERS Safety Report 5019078-X (Version None)
Quarter: 2006Q2

REPORT INFORMATION
  Report Type: 
  Country: None (occurrence: None)
  Receive Date: 20060531
  Receipt Date: 20060516
  Transmission Date: 20061013
  Serious: Yes (Hospitalization)
  Sender: FDA-Public Use
  Company Number: US-2006-010027

PATIENT
  Age: 40 Year
  Sex: Female
  Weight: 58.5 kg

DRUGS (6)
  1. BETASERON [Suspect]
     Indication: MULTIPLE SCLEROSIS
     Dosage: SUBCUTANEOUS
     Route: 058
     Dates: start: 20041209, end: 20060411
  2. HYDROCHLOROTHIAZIDE [Concomitant]
  3. SOLU-MEDROL [Concomitant]
  4. LISINOPRIL [Concomitant]
  5. DIAZEPAM [Concomitant]
  6. PAXIL [Concomitant]

REACTIONS (10)
  - CONSTIPATION [None]
  - DRUG HYPERSENSITIVITY [None]
  - EOSINOPHILIC CELLULITIS [None]
  - HAEMATOCRIT DECREASED [None]
  - INDURATION [None]
  - INJECTION SITE INFLAMMATION [None]
  - MUCKLE-WELLS SYNDROME [None]
  - MYOSITIS [None]
  - PAIN [None]
  - THERAPY NON-RESPONDER [None]
